FAERS Safety Report 23728102 (Version 1)
Quarter: 2024Q2

REPORT INFORMATION
  Report Type: Spontaneous
  Country: US (occurrence: US)
  Receive Date: 20240410
  Receipt Date: 20240410
  Transmission Date: 20240716
  Serious: Yes (Other)
  Sender: FDA-Public Use
  Company Number: US-ALEMBIC PHARMACUETICALS LIMITED-2024SCAL000377

PATIENT

DRUGS (1)
  1. DAPSONE [Suspect]
     Active Substance: DAPSONE
     Indication: Antifungal prophylaxis
     Dosage: UNK
     Route: 065

REACTIONS (7)
  - Myocardial injury [Recovering/Resolving]
  - Pulmonary congestion [Recovering/Resolving]
  - Chest pain [Recovered/Resolved]
  - Dyspnoea [Recovered/Resolved]
  - Right ventricular systolic pressure increased [Recovering/Resolving]
  - Anaemia [Recovering/Resolving]
  - Methaemoglobinaemia [Unknown]
